FAERS Safety Report 9547155 (Version 1)
Quarter: 2013Q2

REPORT INFORMATION
  Report Type: Spontaneous
  Country: US (occurrence: None)
  Receive Date: 20130524
  Receipt Date: 20130524
  Transmission Date: 20140414
  Serious: No
  Sender: FDA-Public Use
  Company Number: PHEH2012US024330

PATIENT
  Age: 53 Year
  Sex: Female

DRUGS (1)
  1. GILENYA (FINGOLIMOD) CAPSULE, 0.5MG [Suspect]
     Indication: MULTIPLE SCLEROSIS
     Route: 048
     Dates: start: 20121121, end: 20121204

REACTIONS (5)
  - Cardiac flutter [None]
  - Nausea [None]
  - Dyspnoea [None]
  - Pain [None]
  - Back pain [None]
